FAERS Safety Report 12521462 (Version 1)
Quarter: 2016Q3

REPORT INFORMATION
  Report Type: Spontaneous
  Country: FR (occurrence: FR)
  Receive Date: 20160701
  Receipt Date: 20160701
  Transmission Date: 20161109
  Serious: Yes (Hospitalization)
  Sender: FDA-Public Use
  Company Number: FR-ROCHE-1784058

PATIENT
  Age: 73 Year
  Sex: Male

DRUGS (8)
  1. PRADAXA [Concomitant]
     Active Substance: DABIGATRAN ETEXILATE MESYLATE
     Route: 065
     Dates: start: 2016
  2. COTELLIC [Suspect]
     Active Substance: COBIMETINIB
     Indication: MALIGNANT MELANOMA
     Dosage: 60 MG FOR 21 DAYS ON 28 DAYS
     Route: 048
     Dates: start: 20160210, end: 20160302
  3. ZELBORAF [Concomitant]
     Active Substance: VEMURAFENIB
     Indication: MALIGNANT MELANOMA
     Dosage: 3RD LINE
     Route: 048
     Dates: start: 201602
  4. INNOHEP [Concomitant]
     Active Substance: TINZAPARIN SODIUM
     Route: 065
  5. COTELLIC [Suspect]
     Active Substance: COBIMETINIB
     Dosage: 60 MG FOR 21 DAYS ON 28 DAYS
     Route: 048
     Dates: start: 20160309
  6. TRAMETINIB [Concomitant]
     Active Substance: TRAMETINIB
     Route: 065
     Dates: start: 20151012, end: 20160129
  7. CORDARONE [Suspect]
     Active Substance: AMIODARONE HYDROCHLORIDE
     Indication: ARRHYTHMIA
     Dosage: LONG-TERM TREATMENT, ONGOING
     Route: 048
  8. DABRAFENIB [Concomitant]
     Active Substance: DABRAFENIB
     Route: 065
     Dates: start: 20151012, end: 20160129

REACTIONS (4)
  - Folliculitis [Recovering/Resolving]
  - Hypokalaemia [Recovered/Resolved]
  - Diarrhoea [Recovered/Resolved]
  - Rhabdomyolysis [Recovered/Resolved]

NARRATIVE: CASE EVENT DATE: 20160301
